FAERS Safety Report 20382445 (Version 2)
Quarter: 2022Q1

REPORT INFORMATION
  Report Type: Spontaneous
  Country: US (occurrence: US)
  Receive Date: 20220127
  Receipt Date: 20220309
  Transmission Date: 20220423
  Serious: No
  Sender: FDA-Public Use
  Company Number: US-PFIZER INC-202101883067

PATIENT
  Age: 12 Year
  Sex: Female
  Weight: 58.06 kg

DRUGS (1)
  1. GENOTROPIN [Suspect]
     Active Substance: SOMATROPIN
     Indication: Turner^s syndrome
     Dosage: CYCLIC (ALTERNATING DAILY DOSES 6 DAYS ON 1 DAY OFF: 2.0MG 1 DAY,2.2MG NEXT DAY)

REACTIONS (3)
  - Product dose omission issue [Not Recovered/Not Resolved]
  - Device information output issue [Not Recovered/Not Resolved]
  - Expired device used [Not Recovered/Not Resolved]

NARRATIVE: CASE EVENT DATE: 20211227
